FAERS Safety Report 9904275 (Version 1)
Quarter: 2014Q1

REPORT INFORMATION
  Report Type: Spontaneous
  Country: CH (occurrence: CH)
  Receive Date: 20140218
  Receipt Date: 20140218
  Transmission Date: 20141002
  Serious: Yes (Hospitalization)
  Sender: FDA-Public Use
  Company Number: CH-RANBAXY-2014US-78204

PATIENT
  Age: 60 Year
  Sex: Male

DRUGS (38)
  1. ACETYLSALICYLIC ACID [Suspect]
     Indication: PROPHYLAXIS
     Dosage: 100 MG, QD
     Route: 048
     Dates: start: 20131118, end: 20131122
  2. ATORVASTATIN [Suspect]
     Indication: HYPERLIPIDAEMIA
     Dosage: 20 MG, QD
     Route: 048
     Dates: start: 20131118, end: 20131118
  3. CEFEPIME [Suspect]
     Indication: BACTERIAL INFECTION
     Dosage: 2 G, TID
     Route: 041
     Dates: start: 20131123, end: 20131129
  4. PANTOZOL [Suspect]
     Indication: PROPHYLAXIS
     Dosage: 40 MG, QD
     Route: 048
     Dates: start: 20131118
  5. SANDIMMUN [Suspect]
     Indication: PROPHYLAXIS
     Dosage: 250 MG, QD
     Route: 041
     Dates: start: 20131124
  6. ZOVIRAX [Suspect]
     Indication: PROPHYLAXIS
     Dosage: 250 MG, QD
     Route: 041
     Dates: start: 20131201, end: 20131202
  7. ENDOXAN [Suspect]
     Indication: PROPHYLAXIS
     Dosage: 5160 MG, QD
     Route: 041
     Dates: start: 20131119, end: 20131120
  8. BUSULFAN [Suspect]
     Indication: PROPHYLAXIS
     Dosage: UNK
     Route: 041
     Dates: start: 20131121, end: 20131124
  9. ATG FRESENIUS [Suspect]
     Indication: PROPHYLAXIS
     Dosage: UNK
     Route: 041
     Dates: start: 20131122, end: 20131124
  10. METOTREXATE [Suspect]
     Indication: PROPHYLAXIS
     Dosage: UNK
     Route: 041
     Dates: start: 20131129, end: 20131202
  11. SOLU MEDROL [Suspect]
     Indication: PROPHYLAXIS
     Dosage: 80 MG, QD
     Route: 041
     Dates: start: 20131122, end: 20131124
  12. AMIKIN [Suspect]
     Indication: BACTERIAL INFECTION
     Dosage: 500 MG, BID
     Route: 041
     Dates: start: 20131123, end: 20131125
  13. NOPIL [Suspect]
     Indication: PROPHYLAXIS
     Dosage: 1 DF, 3/WEEK
     Route: 048
     Dates: start: 201311
  14. DIFLUCAN [Suspect]
     Indication: PROPHYLAXIS
     Dosage: 400 MG, 1/WEEK
     Route: 048
     Dates: start: 201311
  15. VALTREX [Suspect]
     Indication: PROPHYLAXIS
     Dosage: 500 MG, BID
     Route: 048
     Dates: start: 20131118
  16. LASIX [Suspect]
     Indication: DIURETIC THERAPY
     Dosage: 20 MG, QD
     Route: 041
     Dates: start: 20131119
  17. ZYLORIC [Suspect]
     Indication: GOUT
     Dosage: 300 MG, QD
     Route: 048
     Dates: start: 20131118, end: 20131126
  18. ALOXI [Suspect]
     Indication: NAUSEA
     Dosage: 0.25 MG, QD
     Route: 041
     Dates: start: 20131119, end: 20131119
  19. ALOXI [Suspect]
     Indication: VOMITING
  20. UROMITEXAN [Suspect]
     Indication: PROPHYLAXIS
     Dosage: 800 MG, TID
     Route: 041
     Dates: start: 20131119, end: 20131121
  21. EMEND [Suspect]
     Indication: NAUSEA
     Dosage: 125 MG, QD
     Route: 041
     Dates: start: 20131119, end: 20131128
  22. EMEND [Suspect]
     Indication: VOMITING
  23. MERONEM [Suspect]
     Indication: BACTERIAL INFECTION
     Dosage: 1 G, TID
     Route: 041
     Dates: start: 20131202
  24. TRANDATE [Suspect]
     Indication: ESSENTIAL HYPERTENSION
     Dosage: UNK
     Route: 041
     Dates: start: 20131201, end: 20131203
  25. TAZOBAC [Suspect]
     Indication: BACTERIAL INFECTION
     Dosage: 4.5 G, TID
     Route: 041
     Dates: start: 20131129, end: 20131201
  26. FLAMON [Suspect]
     Indication: ESSENTIAL HYPERTENSION
     Dosage: 120 MG, BID
     Route: 048
     Dates: start: 20131118, end: 20131202
  27. TRIATEC [Suspect]
     Indication: ESSENTIAL HYPERTENSION
     Dosage: 2.5 MG, QD
     Route: 048
     Dates: start: 20131122
  28. SOLU CORTEF [Suspect]
     Indication: PROPHYLAXIS
     Dosage: 100 MG, QD
     Route: 041
     Dates: start: 20131128, end: 20131128
  29. TAVEGYL [Concomitant]
     Indication: PRODUCT USED FOR UNKNOWN INDICATION
     Route: 065
  30. FORTECORTIN [Concomitant]
     Indication: PRODUCT USED FOR UNKNOWN INDICATION
     Route: 065
  31. HEPARIN [Concomitant]
     Indication: PRODUCT USED FOR UNKNOWN INDICATION
     Route: 065
  32. PASPERTIN [Concomitant]
     Indication: PRODUCT USED FOR UNKNOWN INDICATION
     Route: 065
  33. FLATULEX [Concomitant]
     Indication: PRODUCT USED FOR UNKNOWN INDICATION
     Route: 065
  34. DUSPATALIN [Concomitant]
     Indication: PRODUCT USED FOR UNKNOWN INDICATION
     Route: 065
  35. LAXOBERON [Concomitant]
     Indication: PRODUCT USED FOR UNKNOWN INDICATION
     Route: 065
  36. LEUCOVORIN [Concomitant]
     Indication: PRODUCT USED FOR UNKNOWN INDICATION
     Route: 065
  37. URSOFALK [Concomitant]
     Indication: PRODUCT USED FOR UNKNOWN INDICATION
     Route: 065
  38. DEFIBROTIDE [Concomitant]
     Indication: PRODUCT USED FOR UNKNOWN INDICATION
     Route: 065

REACTIONS (4)
  - Haemolysis [Unknown]
  - Jaundice [Recovering/Resolving]
  - Blood bilirubin increased [Recovering/Resolving]
  - Hepatic enzyme increased [Recovering/Resolving]
